FAERS Safety Report 14617635 (Version 1)
Quarter: 2018Q1

REPORT INFORMATION
  Report Type: Spontaneous
  Country: DK (occurrence: DK)
  Receive Date: 20180309
  Receipt Date: 20180309
  Transmission Date: 20180509
  Serious: Yes (Hospitalization)
  Sender: FDA-Public Use
  Company Number: DK-009507513-1803DNK001035

PATIENT
  Age: 63 Year
  Sex: Male

DRUGS (4)
  1. DIPROLEN [Suspect]
     Active Substance: BETAMETHASONE DIPROPIONATE
     Dosage: 1 DF, BID
     Route: 003
     Dates: start: 20160128, end: 20160203
  2. DIPROLEN [Suspect]
     Active Substance: BETAMETHASONE DIPROPIONATE
     Dosage: 1 DF, UNK
     Route: 003
     Dates: end: 20160319
  3. FLUCONAZOLE. [Concomitant]
     Active Substance: FLUCONAZOLE
     Indication: FUNGAL INFECTION
     Dosage: STRENGTH: 150 MG; IN TOTAL
     Route: 048
     Dates: start: 20160319
  4. DIPROLEN [Suspect]
     Active Substance: BETAMETHASONE DIPROPIONATE
     Indication: SKIN DISORDER
     Dosage: 0.5 MG/G; ONCE DAILY IN THE EVENING FOR ONE WEEK, THEREAFTER ONCE OR TWICE PER WEEK IN THE EVENING
     Route: 003
     Dates: start: 20151215, end: 20160114

REACTIONS (10)
  - Pruritus [Recovered/Resolved]
  - Anorectal discomfort [Recovered/Resolved]
  - Proctalgia [Recovered/Resolved]
  - Hypersensitivity [Recovered/Resolved]
  - Cardiac fibrillation [Recovered/Resolved]
  - Gynaecomastia [Unknown]
  - Perianal erythema [None]
  - Benign prostatic hyperplasia [Unknown]
  - Prostatic pain [Unknown]
  - Atrial fibrillation [None]

NARRATIVE: CASE EVENT DATE: 2016
